FAERS Safety Report 5333313-X (Version None)
Quarter: 2007Q2

REPORT INFORMATION
  Report Type: 
  Country: None (occurrence: None)
  Receive Date: 20070524
  Receipt Date: 20070516
  Transmission Date: 20071010
  Serious: Yes (Hospitalization)
  Sender: FDA-Public Use
  Company Number: US-AMGEN-STX225081

PATIENT
  Sex: Male

DRUGS (2)
  1. ENBREL [Suspect]
     Indication: RHEUMATOID ARTHRITIS
     Route: 058
     Dates: start: 19981102
  2. METHOTREXATE [Concomitant]
     Route: 058
     Dates: start: 19980101

REACTIONS (13)
  - ABDOMINAL PAIN [None]
  - AMNESIA [None]
  - ARTHRALGIA [None]
  - CHEST PAIN [None]
  - CHOLELITHIASIS [None]
  - CONTUSION [None]
  - DYSPNOEA [None]
  - HYPERTENSION [None]
  - JOINT SWELLING [None]
  - NEPHROLITHIASIS [None]
  - POSTOPERATIVE WOUND COMPLICATION [None]
  - PROCEDURAL COMPLICATION [None]
  - RHEUMATOID ARTHRITIS [None]
